FAERS Safety Report 8444998-3 (Version None)
Quarter: 2012Q2

REPORT INFORMATION
  Report Type: 
  Country: None (occurrence: None)
  Receive Date: 20120606
  Receipt Date: 20120531
  Transmission Date: 20120825
  Serious: Yes (Life-Threatening, Hospitalization)
  Sender: FDA-Public Use
  Company Number: 2012SP029397

PATIENT
  Age: 33 Year
  Sex: Male

DRUGS (4)
  1. AMOXICILLIN TRIHYDRATE [Concomitant]
  2. DERINOX (PREDNISOLONE, NAPHAZOLINE) (DERINOX /06053201/) [Suspect]
     Indication: EAR INFECTION
     Dosage: ;NAS
     Route: 045
     Dates: start: 20120503, end: 20120504
  3. NASONEX [Suspect]
     Indication: EAR INFECTION
     Dates: start: 20120503, end: 20120504
  4. PREDNISOLONE [Concomitant]

REACTIONS (16)
  - AGITATION [None]
  - NYSTAGMUS [None]
  - CEREBROVASCULAR ACCIDENT [None]
  - VOMITING [None]
  - ABDOMINAL PAIN UPPER [None]
  - OXYGEN SATURATION DECREASED [None]
  - HYPERTENSION [None]
  - HYDROCEPHALUS [None]
  - CEREBRAL GAS EMBOLISM [None]
  - RESPIRATORY DEPRESSION [None]
  - ADRENAL MASS [None]
  - PHAEOCHROMOCYTOMA [None]
  - EJECTION FRACTION DECREASED [None]
  - HEADACHE [None]
  - SHOCK HAEMORRHAGIC [None]
  - MYDRIASIS [None]
